FAERS Safety Report 25289827 (Version 4)
Quarter: 2025Q2

REPORT INFORMATION
  Report Type: Report from Study
  Country: NL (occurrence: NL)
  Receive Date: 20250509
  Receipt Date: 20250610
  Transmission Date: 20250716
  Serious: Yes (Hospitalization)
  Sender: VERITY PHARMACEUTICALS INC.
  Company Number: NL-VER-202500042

PATIENT
  Age: 88 Year
  Sex: Male
  Weight: 67 kg

DRUGS (7)
  1. TRIPTORELIN PAMOATE [Suspect]
     Active Substance: TRIPTORELIN PAMOATE
     Indication: Prostate cancer
     Route: 030
     Dates: start: 202411
  2. TRIPTORELIN PAMOATE [Suspect]
     Active Substance: TRIPTORELIN PAMOATE
     Indication: Prostate cancer
     Dosage: 22.5 MG, 1X 24 WEEKS
     Route: 030
     Dates: start: 20240531
  3. TRIPTORELIN PAMOATE [Suspect]
     Active Substance: TRIPTORELIN PAMOATE
     Indication: Prostate cancer
     Dosage: 22.5 MG, 1X 24 WEEKS;
     Route: 030
     Dates: start: 20210129
  4. ELIQUIS [Concomitant]
     Active Substance: APIXABAN
     Indication: Product used for unknown indication
     Route: 065
  5. ATORVASTATIN [Concomitant]
     Active Substance: ATORVASTATIN
     Indication: Product used for unknown indication
     Route: 065
  6. METFORMIN [Concomitant]
     Active Substance: METFORMIN HYDROCHLORIDE
     Indication: Product used for unknown indication
     Route: 065
  7. TOLBUTAMIDE [Concomitant]
     Active Substance: TOLBUTAMIDE
     Indication: Product used for unknown indication
     Route: 065

REACTIONS (2)
  - Fall [Recovered/Resolved]
  - Hypotension [Recovered/Resolved]

NARRATIVE: CASE EVENT DATE: 20250416
